FAERS Safety Report 22886302 (Version 7)
Quarter: 2024Q1

REPORT INFORMATION
  Report Type: Report from Study
  Country: US (occurrence: US)
  Receive Date: 20230831
  Receipt Date: 20240117
  Transmission Date: 20240410
  Serious: Yes (Hospitalization)
  Sender: FDA-Public Use
  Company Number: US-JNJFOC-20230866323

PATIENT
  Age: 51 Year
  Sex: Female
  Weight: 68.2 kg

DRUGS (9)
  1. EPOPROSTENOL SODIUM [Suspect]
     Active Substance: EPOPROSTENOL SODIUM
     Indication: Pulmonary arterial hypertension
     Route: 042
  2. EPOPROSTENOL SODIUM [Suspect]
     Active Substance: EPOPROSTENOL SODIUM
     Indication: Pulmonary hypertension
     Route: 042
  3. EPOPROSTENOL SODIUM [Suspect]
     Active Substance: EPOPROSTENOL SODIUM
     Route: 042
  4. EPOPROSTENOL SODIUM [Suspect]
     Active Substance: EPOPROSTENOL SODIUM
     Route: 042
  5. EPOPROSTENOL SODIUM [Suspect]
     Active Substance: EPOPROSTENOL SODIUM
     Route: 042
  6. EPOPROSTENOL SODIUM [Suspect]
     Active Substance: EPOPROSTENOL SODIUM
     Route: 042
  7. ADCIRCA [Concomitant]
     Active Substance: TADALAFIL
  8. ELIQUIS [Concomitant]
     Active Substance: APIXABAN
  9. OPSUMIT [Concomitant]
     Active Substance: MACITENTAN

REACTIONS (12)
  - Device occlusion [Recovering/Resolving]
  - Complication associated with device [Unknown]
  - Catheter site pain [Unknown]
  - Catheter site erythema [Unknown]
  - Underdose [Unknown]
  - Dizziness [Not Recovered/Not Resolved]
  - Headache [Unknown]
  - Pain in jaw [Unknown]
  - Diarrhoea [Unknown]
  - Asthenia [Recovering/Resolving]
  - Dyspnoea [Recovered/Resolved]
  - Oedema [Not Recovered/Not Resolved]

NARRATIVE: CASE EVENT DATE: 20230819
